FAERS Safety Report 4653478-2 (Version None)
Quarter: 2005Q2

REPORT INFORMATION
  Report Type: 
  Country: None (occurrence: None)
  Receive Date: 20050505
  Receipt Date: 20050427
  Transmission Date: 20051028
  Serious: Yes (Other)
  Sender: FDA-Public Use
  Company Number: GB-GLAXOSMITHKLINE-B0379522A

PATIENT
  Age: 40 Year
  Sex: Female

DRUGS (5)
  1. SEREVENT [Suspect]
     Dosage: 2PUFF TWICE PER DAY
     Dates: start: 20050413, end: 20050418
  2. CARBOCYSTEINE [Concomitant]
     Dosage: 750MG THREE TIMES PER DAY
     Route: 048
     Dates: start: 20050413
  3. AMINOPHYLLINE [Concomitant]
     Dosage: 225MG TWICE PER DAY
     Route: 048
     Dates: start: 20041129
  4. SPIRIVA [Concomitant]
     Dosage: 18MCG PER DAY
     Dates: start: 20040401
  5. SALBUTAMOL [Concomitant]
     Dosage: 2PUFF AS REQUIRED
     Dates: start: 20000101

REACTIONS (3)
  - DYSPNOEA EXACERBATED [None]
  - SWOLLEN TONGUE [None]
  - URTICARIA [None]
